FAERS Safety Report 9735266 (Version 1)
Quarter: 2013Q4

REPORT INFORMATION
  Report Type: Spontaneous
  Country: US (occurrence: None)
  Receive Date: 20131205
  Receipt Date: 20131205
  Transmission Date: 20140711
  Serious: No
  Sender: FDA-Public Use
  Company Number: None

PATIENT
  Age: 60 Year
  Sex: Female
  Weight: 86.18 kg

DRUGS (1)
  1. NON-ASPIRIN PM 500 MG [Suspect]
     Indication: SLEEP DISORDER
     Route: 048
     Dates: start: 20131104, end: 20131202

REACTIONS (4)
  - Restlessness [None]
  - Restless legs syndrome [None]
  - Myalgia [None]
  - Arthralgia [None]
